FAERS Safety Report 5072856-3 (Version None)
Quarter: 2006Q3

REPORT INFORMATION
  Report Type: 
  Country: None (occurrence: None)
  Receive Date: 20060802
  Receipt Date: 20060725
  Transmission Date: 20061208
  Serious: Yes (Hospitalization)
  Sender: FDA-Public Use
  Company Number: FRWYE354225JUL06

PATIENT
  Age: 89 Year
  Sex: Female

DRUGS (4)
  1. EFFEXOR [Suspect]
     Indication: MAJOR DEPRESSION
     Dosage: 25 MG 1X PER 1 DAY ORAL; SEE IMAGE
     Route: 048
     Dates: start: 20060629, end: 20060630
  2. EFFEXOR [Suspect]
     Indication: MAJOR DEPRESSION
     Dosage: 25 MG 1X PER 1 DAY ORAL; SEE IMAGE
     Route: 048
     Dates: start: 20060701, end: 20060702
  3. EFFEXOR [Suspect]
     Indication: MAJOR DEPRESSION
     Dosage: 25 MG 1X PER 1 DAY ORAL; SEE IMAGE
     Route: 048
     Dates: start: 20060704, end: 20060706
  4. DOGMATIL (SULPIRIDE, , 0) [Suspect]
     Dosage: 50 MG 1X PER 1 DAY ORAL
     Route: 048
     Dates: start: 20060628, end: 20060630

REACTIONS (3)
  - APNOEA [None]
  - HYPONATRAEMIA [None]
  - SOMNOLENCE [None]
